FAERS Safety Report 6161074-3 (Version None)
Quarter: 2009Q2

REPORT INFORMATION
  Report Type: 
  Country: None (occurrence: None)
  Receive Date: 20090420
  Receipt Date: 20090408
  Transmission Date: 20091009
  Serious: Yes (Hospitalization, Other)
  Sender: FDA-Public Use
  Company Number: US-PFIZER INC-2009195730

PATIENT
  Sex: Female

DRUGS (1)
  1. LYRICA [Suspect]
     Indication: BONE PAIN
     Dosage: 75 MG, 2X/DAY
     Dates: start: 20080101, end: 20080101

REACTIONS (2)
  - IMPAIRED DRIVING ABILITY [None]
  - MEMORY IMPAIRMENT [None]
